FAERS Safety Report 20203757 (Version 1)
Quarter: 2021Q4

REPORT INFORMATION
  Report Type: Spontaneous
  Country: US (occurrence: US)
  Receive Date: 20211219
  Receipt Date: 20211219
  Transmission Date: 20220303
  Serious: Yes (Hospitalization, Other)
  Sender: FDA-Public Use
  Company Number: US-NOVARTISPH-NVSC2021US284938

PATIENT
  Age: 11 Year
  Sex: Male

DRUGS (1)
  1. IBUPROFEN [Suspect]
     Active Substance: IBUPROFEN
     Indication: Postpericardiotomy syndrome
     Dosage: UNK UNK, Q6H
     Route: 065

REACTIONS (3)
  - Gastritis [Unknown]
  - Haematemesis [Unknown]
  - Product use in unapproved indication [Unknown]
